FAERS Safety Report 15676864 (Version 20)
Quarter: 2021Q4

REPORT INFORMATION
  Report Type: Spontaneous
  Country: US (occurrence: US)
  Receive Date: 20181130
  Receipt Date: 20211112
  Transmission Date: 20220304
  Serious: Yes (Hospitalization, Other)
  Sender: FDA-Public Use
  Company Number: US-PFIZER INC-2018483671

PATIENT
  Age: 62 Year
  Sex: Male
  Weight: 116.12 kg

DRUGS (6)
  1. LYRICA [Suspect]
     Active Substance: PREGABALIN
     Indication: Diabetic neuropathy
     Dosage: 100 MG, 3X/DAY
     Route: 048
  2. LYRICA [Suspect]
     Active Substance: PREGABALIN
     Indication: Pain in extremity
     Dosage: 75 MG, 4X/DAY
     Route: 048
  3. LYRICA [Suspect]
     Active Substance: PREGABALIN
     Indication: Neuropathy peripheral
  4. LYRICA [Suspect]
     Active Substance: PREGABALIN
     Indication: Diabetes mellitus
  5. LYRICA [Suspect]
     Active Substance: PREGABALIN
     Indication: Nerve injury
  6. PREDNISONE [Concomitant]
     Active Substance: PREDNISONE
     Indication: Pain
     Dosage: UNK

REACTIONS (13)
  - Myocardial infarction [Unknown]
  - Neoplasm malignant [Unknown]
  - Colon cancer [Unknown]
  - Coronary artery occlusion [Unknown]
  - Musculoskeletal discomfort [Unknown]
  - Extra dose administered [Unknown]
  - Insomnia [Unknown]
  - Memory impairment [Unknown]
  - Onychomadesis [Unknown]
  - Hypoaesthesia [Not Recovered/Not Resolved]
  - Malaise [Unknown]
  - Bronchitis [Unknown]
  - Sensitivity to weather change [Unknown]

NARRATIVE: CASE EVENT DATE: 20200101
